FAERS Safety Report 7813672 (Version 5)
Quarter: 2013Q1

REPORT INFORMATION
  Report Type: Report from Study
  Country: US (occurrence: US)
  Receive Date: 20110216
  Receipt Date: 20130218
  Transmission Date: 20140127
  Serious: Yes (Hospitalization, Other)
  Sender: FDA-Public Use
  Company Number: US-BIOGENIDEC-2011BI004749

PATIENT
  Age: 37 Year
  Sex: Female

DRUGS (1)
  1. TYSABRI [Suspect]
     Indication: MULTIPLE SCLEROSIS
     Route: 042
     Dates: start: 20090801

REACTIONS (3)
  - Portal vein thrombosis [Recovered/Resolved]
  - Enterocolitis infectious [Recovered/Resolved with Sequelae]
  - Pelvic cyst [Recovered/Resolved with Sequelae]
